FAERS Safety Report 19959258 (Version 1)
Quarter: 2021Q4

REPORT INFORMATION
  Report Type: Spontaneous
  Country: US (occurrence: US)
  Receive Date: 20211013
  Receipt Date: 20211013
  Transmission Date: 20220303
  Serious: No
  Sender: FDA-Public Use
  Company Number: None

PATIENT
  Age: 62 Year
  Sex: Male

DRUGS (1)
  1. CYCLOSPORINE MODIFIED [Suspect]
     Active Substance: CYCLOSPORINE
     Indication: Stem cell transplant
     Route: 048
     Dates: start: 202007

REACTIONS (3)
  - Dizziness [None]
  - Diarrhoea [None]
  - Blood pressure decreased [None]

NARRATIVE: CASE EVENT DATE: 20210922
